FAERS Safety Report 4411437-9 (Version None)
Quarter: 2004Q3

REPORT INFORMATION
  Report Type: 
  Country: None (occurrence: None)
  Receive Date: 20040727
  Receipt Date: 20040714
  Transmission Date: 20050211
  Serious: Yes (Death)
  Sender: FDA-Public Use
  Company Number: 2004-07-0565

PATIENT

DRUGS (2)
  1. CLARITIN [Suspect]
     Indication: DIALYSIS
     Dosage: 20 MG DAILY ORAL
     Route: 048
     Dates: end: 20040713
  2. CLARITIN [Suspect]
     Indication: PRURITUS
     Dosage: 20 MG DAILY ORAL
     Route: 048
     Dates: end: 20040713

REACTIONS (1)
  - CEREBRAL HAEMORRHAGE [None]
